FAERS Safety Report 4900501-3 (Version None)
Quarter: 2006Q1

REPORT INFORMATION
  Report Type: 
  Country: None (occurrence: None)
  Receive Date: 20060203
  Receipt Date: 20050105
  Transmission Date: 20060701
  Serious: Yes (Death, Hospitalization)
  Sender: FDA-Public Use
  Company Number: US-MERCK-0501USA00616

PATIENT
  Age: 63 Year
  Sex: Male
  Weight: 93 kg

DRUGS (23)
  1. VIOXX [Suspect]
     Indication: RHEUMATOID ARTHRITIS
     Route: 048
     Dates: start: 19991229, end: 20040910
  2. SEROQUEL [Concomitant]
     Route: 065
  3. COZAAR [Concomitant]
     Route: 048
  4. LIPITOR [Concomitant]
     Route: 048
  5. PREDNISONE [Concomitant]
     Route: 048
  6. METHOTREXATE [Concomitant]
     Route: 065
  7. POTASSIUM CHLORIDE [Concomitant]
     Route: 065
  8. LOPRESSOR HCT [Concomitant]
     Route: 065
  9. LORTAB [Concomitant]
     Route: 048
  10. LEVAQUIN [Concomitant]
     Route: 048
  11. CLONAZEPAM [Concomitant]
     Route: 065
  12. XANAX [Concomitant]
     Route: 065
     Dates: end: 20021016
  13. ZOLOFT [Concomitant]
     Route: 048
     Dates: end: 20021016
  14. ZOLOFT [Concomitant]
     Route: 048
     Dates: start: 20021016
  15. PRED FORTE [Concomitant]
     Route: 065
  16. TIMOLOL [Concomitant]
     Route: 065
  17. PERCOCET [Concomitant]
     Route: 065
  18. DURAGESIC-100 [Concomitant]
     Route: 061
  19. PAXIL [Concomitant]
     Route: 065
  20. ZYPREXA [Concomitant]
     Route: 065
  21. LEXAPRO [Concomitant]
     Route: 065
  22. ACIPHEX [Concomitant]
     Route: 065
  23. LATANOPROST [Concomitant]
     Route: 065

REACTIONS (21)
  - ADRENOCORTICAL INSUFFICIENCY ACUTE [None]
  - AMNESIA [None]
  - ANXIETY [None]
  - BACK PAIN [None]
  - BURSITIS [None]
  - CARDIAC FAILURE [None]
  - CELLULITIS [None]
  - CONSTIPATION [None]
  - DELIRIUM [None]
  - DEPRESSION [None]
  - DUODENAL ULCER HAEMORRHAGE [None]
  - HYPOKALAEMIA [None]
  - INFECTION [None]
  - LOWER GASTROINTESTINAL HAEMORRHAGE [None]
  - PEPTIC ULCER [None]
  - PNEUMONIA [None]
  - PSYCHOTIC DISORDER [None]
  - RESPIRATORY FAILURE [None]
  - SUICIDAL IDEATION [None]
  - TENDON RUPTURE [None]
  - ULCER [None]
